FAERS Safety Report 9189629 (Version 1)
Quarter: 2013Q1

REPORT INFORMATION
  Report Type: Spontaneous
  Country: US (occurrence: US)
  Receive Date: 20130326
  Receipt Date: 20130326
  Transmission Date: 20140127
  Serious: Yes (Disabling, Other)
  Sender: FDA-Public Use
  Company Number: US-JNJFOC-20130314778

PATIENT
  Age: 21 Year
  Sex: Female

DRUGS (3)
  1. TRAMADOL HYDROCHLORIDE [Suspect]
     Indication: PAIN
     Route: 065
  2. OXYCONTIN [Suspect]
     Indication: PAIN
     Route: 065
  3. DILAUDID [Suspect]
     Indication: PAIN
     Route: 065

REACTIONS (5)
  - Local swelling [Unknown]
  - Pain [Unknown]
  - Gait disturbance [Unknown]
  - Dizziness [Unknown]
  - Headache [Unknown]
